FAERS Safety Report 4943311-3 (Version None)
Quarter: 2006Q1

REPORT INFORMATION
  Report Type: 
  Country: None (occurrence: None)
  Receive Date: 20060309
  Receipt Date: 20060303
  Transmission Date: 20060701
  Serious: Yes (Other)
  Sender: FDA-Public Use
  Company Number: 200513332BCC

PATIENT
  Age: 57 Year
  Sex: Female
  Weight: 90.7194 kg

DRUGS (1)
  1. NAPROXEN SODIUM [Suspect]
     Indication: ARTHRITIS
     Dosage: 440 MG, BID, ORAL
     Route: 048
     Dates: start: 20050629, end: 20050812

REACTIONS (3)
  - POST PROCEDURAL COMPLICATION [None]
  - POSTMENOPAUSAL HAEMORRHAGE [None]
  - VAGINAL HAEMORRHAGE [None]
